FAERS Safety Report 7487656-4 (Version None)
Quarter: 2011Q2

REPORT INFORMATION
  Report Type: 
  Country: None (occurrence: None)
  Receive Date: 20110518
  Receipt Date: 20080125
  Transmission Date: 20111010
  Serious: Yes (Other)
  Sender: FDA-Public Use
  Company Number: US-BAYER-200812168NA

PATIENT
  Age: 45 Year
  Sex: Male
  Weight: 99.773 kg

DRUGS (22)
  1. LASIX [Concomitant]
     Dosage: 40 MG, UNK
  2. ACCUPRIL [Concomitant]
     Dosage: 10 MG, UNK
  3. PAVULON [Concomitant]
     Dosage: 8 MG, UNK
  4. MAXIPIME [Concomitant]
     Dosage: 1 G, UNK
  5. HUMALOG [Concomitant]
     Dosage: 75/25 UNITS
  6. ACETYLSALICYLIC ACID SRT [Concomitant]
     Dosage: 81 MG, UNK
  7. ALTACE [Concomitant]
     Dosage: 10 MG, UNK
  8. DOPAMINE HCL [Concomitant]
  9. TRASYLOL [Suspect]
     Indication: CORONARY ARTERY BYPASS
     Dosage: 1 ML, INTIAL
     Route: 042
     Dates: start: 20030808
  10. PLAVIX [Concomitant]
     Dosage: 75 MG, UNK
     Dates: start: 20030529
  11. AMIDATE [Concomitant]
     Dosage: 12 MG, UNK
  12. HEPARIN [Concomitant]
  13. NITROGLYCERIN [Concomitant]
     Dosage: 0.4 MG, UNK
     Dates: end: 20030529
  14. PROPOFOL [Concomitant]
  15. FOLTX [Concomitant]
     Dosage: 1 TAB EVERY DAY
  16. SUFENTA PRESERVATIVE FREE [Concomitant]
     Dosage: 100 ?G, UNK
  17. ANCEF [Concomitant]
     Dosage: 2 G, UNK
  18. MORPHINE [Concomitant]
  19. MAGNESIUM SULFATE [Concomitant]
  20. COREG [Concomitant]
     Dosage: 25 MG, BID
     Dates: start: 20030529
  21. LOPRESSOR [Concomitant]
     Dosage: 50 MG, BID
     Dates: end: 20030529
  22. VERSED [Concomitant]
     Dosage: 2 MG, UNK

REACTIONS (8)
  - RENAL FAILURE [None]
  - EMOTIONAL DISTRESS [None]
  - FLUID OVERLOAD [None]
  - ANHEDONIA [None]
  - PAIN [None]
  - RENAL INJURY [None]
  - ADVERSE EVENT [None]
  - INJURY [None]
